FAERS Safety Report 10425472 (Version 1)
Quarter: 2014Q3

REPORT INFORMATION
  Report Type: Report from Study
  Country: CA (occurrence: CA)
  Receive Date: 20140902
  Receipt Date: 20140902
  Transmission Date: 20150326
  Serious: Yes (Hospitalization, Other)
  Sender: FDA-Public Use
  Company Number: CA-ABBVIE-14K-028-1276679-00

PATIENT
  Age: 43 Year
  Sex: Female
  Weight: 102.15 kg

DRUGS (4)
  1. HUMIRA [Suspect]
     Active Substance: ADALIMUMAB
     Route: 058
     Dates: start: 20130527
  2. METHOTREXATE [Concomitant]
     Active Substance: METHOTREXATE
     Indication: RHEUMATOID ARTHRITIS
     Dates: start: 201101
  3. HUMIRA [Suspect]
     Active Substance: ADALIMUMAB
     Indication: CROHN^S DISEASE
     Route: 058
     Dates: start: 20080305, end: 201305
  4. CELEBREX [Concomitant]
     Active Substance: CELECOXIB
     Indication: RHEUMATOID ARTHRITIS
     Dates: start: 200904

REACTIONS (14)
  - Pancreatitis [Recovered/Resolved]
  - Lower limb fracture [Recovered/Resolved]
  - Weight decreased [Unknown]
  - Drug ineffective [Unknown]
  - Fall [Recovered/Resolved]
  - Eye inflammation [Recovered/Resolved]
  - Mass [Unknown]
  - Weight increased [Unknown]
  - Pyoderma gangrenosum [Recovered/Resolved]
  - Abdominal pain [Not Recovered/Not Resolved]
  - Fibula fracture [Unknown]
  - Amylase increased [Recovered/Resolved]
  - Blood alkaline phosphatase increased [Unknown]
  - Aspartate aminotransferase increased [Unknown]

NARRATIVE: CASE EVENT DATE: 2011
